FAERS Safety Report 13967443 (Version 1)
Quarter: 2017Q3

REPORT INFORMATION
  Report Type: Spontaneous
  Country: US (occurrence: US)
  Receive Date: 20170914
  Receipt Date: 20170914
  Transmission Date: 20171128
  Serious: Yes (Other)
  Sender: FDA-Public Use
  Company Number: US-PFIZER INC-2017397185

PATIENT
  Age: 69 Year
  Sex: Male
  Weight: 63.5 kg

DRUGS (3)
  1. ADVIL [Suspect]
     Active Substance: IBUPROFEN
     Indication: BACK PAIN
     Dosage: 200MG ROUND CAPSULE, 3-6 CAPSULES DAILY
     Route: 048
     Dates: start: 20170902, end: 20170910
  2. ASPIRIN. [Concomitant]
     Active Substance: ASPIRIN
     Indication: CARDIAC DISORDER
  3. ASPIRIN. [Concomitant]
     Active Substance: ASPIRIN
     Indication: BLOOD DISORDER
     Dosage: 81 MG, UNK

REACTIONS (2)
  - Diarrhoea [Unknown]
  - Haematochezia [Unknown]

NARRATIVE: CASE EVENT DATE: 20170911
